FAERS Safety Report 4308681-8 (Version None)
Quarter: 2004Q1

REPORT INFORMATION
  Report Type: 
  Country: None (occurrence: None)
  Receive Date: 20040301
  Receipt Date: 20040301
  Transmission Date: 20041129
  Serious: Yes (Hospitalization)
  Sender: FDA-Public Use
  Company Number: None

PATIENT
  Sex: Male
  Weight: 99.7913 kg

DRUGS (1)
  1. PROCRIT (40,000 IU ORTHO, BIOTECH) [Suspect]
     Indication: ANAEMIA
     Dosage: 80,000 IU Q3W SQ
     Dates: start: 20031230, end: 20040120

REACTIONS (8)
  - BALANCE DISORDER [None]
  - BLOOD PRESSURE INCREASED [None]
  - COORDINATION ABNORMAL [None]
  - DEPRESSED LEVEL OF CONSCIOUSNESS [None]
  - DYSARTHRIA [None]
  - HEADACHE [None]
  - MENTAL STATUS CHANGES [None]
  - SLUGGISHNESS [None]
